FAERS Safety Report 24881194 (Version 1)
Quarter: 2025Q1

REPORT INFORMATION
  Report Type: Spontaneous
  Country: US (occurrence: US)
  Receive Date: 20250124
  Receipt Date: 20250124
  Transmission Date: 20250408
  Serious: Yes (Other)
  Sender: NOVO NORDISK
  Company Number: US-NOVOPROD-1350500

PATIENT
  Age: 40 Year
  Sex: Female
  Weight: 90.71 kg

DRUGS (1)
  1. WEGOVY [Suspect]
     Active Substance: SEMAGLUTIDE
     Indication: Weight control
     Route: 058

REACTIONS (3)
  - Polycystic ovarian syndrome [Unknown]
  - Autoimmune thyroiditis [Unknown]
  - Endometriosis [Unknown]
